FAERS Safety Report 7178880-9 (Version None)
Quarter: 2010Q4

REPORT INFORMATION
  Report Type: 
  Country: None (occurrence: None)
  Receive Date: 20101217
  Receipt Date: 20101217
  Transmission Date: 20110411
  Serious: Yes (Death)
  Sender: FDA-Public Use
  Company Number: None

PATIENT
  Sex: Male

DRUGS (2)
  1. HALDOL [Suspect]
     Indication: ABNORMAL BEHAVIOUR
     Dosage: 5MG THREE TIMES/DAY PO
     Route: 048
  2. HALDOL [Suspect]
     Indication: DEMENTIA
     Dosage: 5MG THREE TIMES/DAY PO
     Route: 048

REACTIONS (11)
  - ASPIRATION [None]
  - ATRIAL FIBRILLATION [None]
  - BODY TEMPERATURE INCREASED [None]
  - CEREBROVASCULAR ACCIDENT [None]
  - DELIRIUM [None]
  - DISORIENTATION [None]
  - HYPOVOLAEMIA [None]
  - NEUROLEPTIC MALIGNANT SYNDROME [None]
  - PHYSICAL ASSAULT [None]
  - RESPIRATORY TRACT CONGESTION [None]
  - SEPSIS [None]
